FAERS Safety Report 25396738 (Version 1)
Quarter: 2025Q2

REPORT INFORMATION
  Report Type: Report from Study
  Country: CA (occurrence: CA)
  Receive Date: 20250604
  Receipt Date: 20250604
  Transmission Date: 20250716
  Serious: Yes (Congenital Anomaly)
  Sender: TAKEDA
  Company Number: CA-TAKEDA-2025TUS050445

PATIENT
  Age: 22 Month

DRUGS (2)
  1. VEDOLIZUMAB [Suspect]
     Active Substance: VEDOLIZUMAB
     Indication: Colitis ulcerative
  2. PENTASA [Concomitant]
     Active Substance: MESALAMINE
     Dosage: UNK UNK, QID

REACTIONS (5)
  - Hypotonia [Not Recovered/Not Resolved]
  - Speech disorder developmental [Not Recovered/Not Resolved]
  - Gait inability [Not Recovered/Not Resolved]
  - Exposure via breast milk [Unknown]
  - Foetal exposure during pregnancy [Unknown]
